FAERS Safety Report 5559185-6 (Version None)
Quarter: 2007Q4

REPORT INFORMATION
  Report Type: 
  Country: None (occurrence: None)
  Receive Date: 20071214
  Receipt Date: 20070919
  Transmission Date: 20080405
  Serious: No
  Sender: FDA-Public Use
  Company Number: US-ABBOTT-07P-163-0418072-00

PATIENT
  Sex: Male
  Weight: 90.8 kg

DRUGS (5)
  1. HUMIRA [Suspect]
     Indication: RHEUMATOID ARTHRITIS
     Route: 058
     Dates: start: 20070907
  2. EZETIMIBE [Concomitant]
     Indication: BLOOD CHOLESTEROL
     Route: 048
  3. GABAPENTIN [Concomitant]
     Indication: PAIN
     Route: 048
  4. CITALOPRAM [Concomitant]
     Indication: DEPRESSION
     Route: 048
  5. RANITIDINE HCL [Concomitant]
     Indication: STOMACH DISCOMFORT
     Route: 048

REACTIONS (1)
  - NASOPHARYNGITIS [None]
